FAERS Safety Report 16569436 (Version 2)
Quarter: 2019Q3

REPORT INFORMATION
  Report Type: Spontaneous
  Country: RO (occurrence: RO)
  Receive Date: 20190715
  Receipt Date: 20190904
  Transmission Date: 20191004
  Serious: Yes (Hospitalization)
  Sender: FDA-Public Use
  Company Number: RO-ROCHE-2352153

PATIENT
  Age: 42 Year
  Sex: Male

DRUGS (11)
  1. TACROLIMUS. [Suspect]
     Active Substance: TACROLIMUS
     Indication: PROPHYLAXIS AGAINST TRANSPLANT REJECTION
     Dosage: PROGRESSIVELY ADJUSTED AND LOWERED DURING THE NEXT YEAR AND A HALF
     Route: 065
  2. DASABUVIR [Concomitant]
     Active Substance: DASABUVIR
     Indication: ANTIVIRAL TREATMENT
  3. PREDNISONE. [Suspect]
     Active Substance: PREDNISONE
     Indication: PROPHYLAXIS AGAINST TRANSPLANT REJECTION
     Route: 065
  4. TACROLIMUS. [Suspect]
     Active Substance: TACROLIMUS
     Dosage: THE PATIENT HAD BEEN INSTRUCTED TO LOWER THE DOSE OF TACROLIMUS TO 2 MG PER WEEK
     Route: 065
  5. PARITAPREVIR [Concomitant]
     Active Substance: PARITAPREVIR
     Indication: ANTIVIRAL TREATMENT
  6. RITONAVIR. [Concomitant]
     Active Substance: RITONAVIR
     Indication: ANTIVIRAL TREATMENT
  7. OMBITASVIR [Concomitant]
     Active Substance: OMBITASVIR
     Indication: ANTIVIRAL TREATMENT
  8. MYCOPHENOLATE MOFETIL. [Suspect]
     Active Substance: MYCOPHENOLATE MOFETIL
     Indication: PROPHYLAXIS AGAINST TRANSPLANT REJECTION
     Dosage: PROGRESSIVELY ADJUSTED AND LOWERED DURING THE NEXT YEAR AND A HALF
     Route: 065
  9. TACROLIMUS. [Suspect]
     Active Substance: TACROLIMUS
     Route: 065
  10. MYCOPHENOLATE MOFETIL. [Suspect]
     Active Substance: MYCOPHENOLATE MOFETIL
     Route: 065
  11. PREDNISONE. [Suspect]
     Active Substance: PREDNISONE
     Dosage: THE DOSAGE OF THE IMMUNOSUPPRESSIVE DRUGS WAS PROGRESSIVELY ADJUSTED AND LOWERED DURING THE NEXT YEA
     Route: 065

REACTIONS (2)
  - Chronic hepatitis C [Recovered/Resolved]
  - Hyperglycaemia [Recovered/Resolved]
